FAERS Safety Report 5793524-6 (Version None)
Quarter: 2008Q2

REPORT INFORMATION
  Report Type: 
  Country: None (occurrence: None)
  Receive Date: 20080627
  Receipt Date: 20080625
  Transmission Date: 20081010
  Serious: Yes (Life-Threatening)
  Sender: FDA-Public Use
  Company Number: PHHY2008ES12043

PATIENT
  Age: 64 Year
  Sex: Male

DRUGS (2)
  1. GLIVEC [Suspect]
     Indication: CHRONIC MYELOID LEUKAEMIA
     Dosage: 600 MG, QD
     Route: 048
     Dates: start: 20071030, end: 20080130
  2. GLIVEC [Suspect]
     Dosage: 800 MG, BID
     Route: 048
     Dates: start: 20080131, end: 20080221

REACTIONS (1)
  - OESOPHAGEAL PERFORATION [None]
